FAERS Safety Report 9382247 (Version 3)
Quarter: 2013Q3

REPORT INFORMATION
  Report Type: Spontaneous
  Country: FR (occurrence: FR)
  Receive Date: 20130703
  Receipt Date: 20130723
  Transmission Date: 20140515
  Serious: Yes (Hospitalization)
  Sender: FDA-Public Use
  Company Number: FR-JNJFOC-20130614089

PATIENT
  Age: 78 Year
  Sex: Male

DRUGS (15)
  1. DUROGESIC [Suspect]
     Indication: PRODUCT USED FOR UNKNOWN INDICATION
     Route: 062
     Dates: start: 20130322, end: 20130329
  2. LEVOTHYROX [Concomitant]
     Indication: PRODUCT USED FOR UNKNOWN INDICATION
     Dosage: ONEC IN THE MORNING, LONG TERM TREATMENT
     Route: 048
  3. IMOVANE [Concomitant]
     Indication: PRODUCT USED FOR UNKNOWN INDICATION
     Dosage: ONCE IN THE EVENING, LONG TERM TREATMENT
     Route: 048
  4. INEXIUM [Concomitant]
     Indication: PRODUCT USED FOR UNKNOWN INDICATION
     Dosage: ONCE IN THE EVENING, LONG TERM TREATMENT
     Route: 048
  5. VASTEN [Concomitant]
     Indication: PRODUCT USED FOR UNKNOWN INDICATION
     Dosage: ONCE IN THE MORNING, LONG TERM TREATMENT
     Route: 048
  6. SOTALEX [Concomitant]
     Indication: PRODUCT USED FOR UNKNOWN INDICATION
     Dosage: ONCE IN THE MORNING, LONG TERM TREATMENT
     Route: 048
  7. ALFACALCIDOL [Concomitant]
     Indication: PRODUCT USED FOR UNKNOWN INDICATION
     Dosage: (MONDAY, WEDNESDAY, FRIDAY), LONG TERM TREATMENT
     Route: 048
  8. SPIRIVA [Concomitant]
     Indication: PRODUCT USED FOR UNKNOWN INDICATION
     Dosage: ONCE IN THE MORNING, LONG TERM TREATMENT
     Route: 055
  9. ONBREZ [Concomitant]
     Indication: PRODUCT USED FOR UNKNOWN INDICATION
     Dosage: ONCE IN THE MORNING, LONG TERM TREATMENT
     Route: 055
  10. FLUINDIONE [Concomitant]
     Indication: PRODUCT USED FOR UNKNOWN INDICATION
     Dosage: 0.5 EVERY EVENING, LONG TERM TREATMENT
     Route: 048
  11. KARDEGIC [Concomitant]
     Indication: PRODUCT USED FOR UNKNOWN INDICATION
     Dosage: ONCE AT AFTERNOON, LONG TERM TREATMENT
     Route: 048
  12. FORLAX [Concomitant]
     Indication: PRODUCT USED FOR UNKNOWN INDICATION
     Dosage: 2 IF NECESSARY, LONG TERM TREATMENT
     Route: 048
  13. LEVEMIR [Concomitant]
     Indication: PRODUCT USED FOR UNKNOWN INDICATION
     Dosage: 6 AT 10 UI ON THE MORNING DEPENDING OF THE GLYCEMIA, LONG TERM TREATMENT
     Route: 058
  14. SPECIAFOLDINE [Concomitant]
     Indication: PRODUCT USED FOR UNKNOWN INDICATION
     Dosage: ONCE ON THE MORNING, LONG TERM TREATMENT
     Route: 048
  15. LAMALINE [Concomitant]
     Indication: PRODUCT USED FOR UNKNOWN INDICATION
     Dosage: TWICE A DAY, LONG TERM TREATMENT
     Route: 048

REACTIONS (5)
  - Somnolence [Recovered/Resolved]
  - Fall [Recovered/Resolved]
  - Hyperkalaemia [Unknown]
  - Neurological symptom [Recovered/Resolved]
  - Confusional state [Recovered/Resolved]
